FAERS Safety Report 9717941 (Version 1)
Quarter: 2013Q4

REPORT INFORMATION
  Report Type: Spontaneous
  Country: US (occurrence: US)
  Receive Date: 20131127
  Receipt Date: 20131127
  Transmission Date: 20140711
  Serious: Yes (Other)
  Sender: FDA-Public Use
  Company Number: US-ALLERGAN-1318515US

PATIENT
  Age: 48 Year
  Sex: Female

DRUGS (2)
  1. BOTOX [Suspect]
     Indication: SKIN WRINKLING
     Dosage: UNK UNK, SINGLE
  2. JUVEDERM [Suspect]
     Indication: DERMAL FILLER INJECTION
     Dosage: UNK, SINGLE

REACTIONS (1)
  - Embolism arterial [Unknown]
